FAERS Safety Report 7927443-3 (Version None)
Quarter: 2011Q4

REPORT INFORMATION
  Report Type: 
  Country: None (occurrence: None)
  Receive Date: 20111118
  Receipt Date: 20111107
  Transmission Date: 20120403
  Serious: Yes (Death)
  Sender: FDA-Public Use
  Company Number: JP-SANOFI-AVENTIS-2011SA070180

PATIENT
  Age: 60 Year
  Sex: Male

DRUGS (1)
  1. LANTUS [Suspect]
     Route: 065
     Dates: start: 20080714, end: 20100924

REACTIONS (1)
  - CENTRAL NERVOUS SYSTEM LYMPHOMA [None]
